FAERS Safety Report 7253504-0 (Version None)
Quarter: 2011Q1

REPORT INFORMATION
  Report Type: 
  Country: None (occurrence: None)
  Receive Date: 20110129
  Receipt Date: 20100215
  Transmission Date: 20110831
  Serious: No
  Sender: FDA-Public Use
  Company Number: US-ABBOTT-10P-163-0626415-00

PATIENT
  Sex: Female
  Weight: 70.824 kg

DRUGS (5)
  1. HUMIRA [Suspect]
     Indication: RHEUMATOID ARTHRITIS
     Dates: start: 20100102
  2. FLEXERIL [Concomitant]
     Indication: PRODUCT USED FOR UNKNOWN INDICATION
  3. LISINOPRIL [Concomitant]
     Indication: PRODUCT USED FOR UNKNOWN INDICATION
  4. MXT [Concomitant]
     Indication: PRODUCT USED FOR UNKNOWN INDICATION
  5. PAIN PATCH [Concomitant]
     Indication: PAIN

REACTIONS (1)
  - RASH MACULAR [None]
